FAERS Safety Report 7820588-8 (Version None)
Quarter: 2011Q4

REPORT INFORMATION
  Report Type: 
  Country: None (occurrence: None)
  Receive Date: 20111018
  Receipt Date: 20111006
  Transmission Date: 20120403
  Serious: Yes (Other)
  Sender: FDA-Public Use
  Company Number: US-JNJFOC-20111005467

PATIENT
  Sex: Female
  Weight: 77.1 kg

DRUGS (10)
  1. NICOTROL [Suspect]
     Route: 045
     Dates: start: 20111006
  2. LEVOTHYROXINE SODIUM [Concomitant]
     Indication: HYPOTHYROIDISM
     Route: 065
  3. EFFEXOR [Concomitant]
     Indication: PRODUCT USED FOR UNKNOWN INDICATION
     Route: 065
  4. PRAVASTATIN [Concomitant]
     Indication: PRODUCT USED FOR UNKNOWN INDICATION
     Route: 065
  5. NICOTROL [Suspect]
     Route: 045
     Dates: start: 20111006
  6. NICOTROL [Suspect]
     Route: 045
     Dates: start: 20110101, end: 20110901
  7. NICOTINE [Suspect]
     Route: 065
  8. TRAZODONE HYDROCHLORIDE [Concomitant]
     Indication: PRODUCT USED FOR UNKNOWN INDICATION
     Dosage: AS NEEDED
     Route: 065
  9. NICOTROL [Suspect]
     Indication: SMOKING CESSATION THERAPY
     Route: 045
     Dates: start: 20110101, end: 20110901
  10. NICOTINE [Suspect]
     Indication: SMOKING CESSATION THERAPY
     Route: 065
     Dates: start: 20110901, end: 20111006

REACTIONS (1)
  - HYPERSENSITIVITY [None]
